FAERS Safety Report 5373447-7 (Version None)
Quarter: 2007Q2

REPORT INFORMATION
  Report Type: 
  Country: None (occurrence: None)
  Receive Date: 20070628
  Receipt Date: 20070615
  Transmission Date: 20071010
  Serious: Yes (Hospitalization)
  Sender: FDA-Public Use
  Company Number: IT-AMGEN-UK229968

PATIENT
  Sex: Female

DRUGS (5)
  1. NEULASTA [Suspect]
     Indication: DRUG USE FOR UNKNOWN INDICATION
     Route: 058
     Dates: start: 20070405, end: 20070604
  2. PREDNISONE TAB [Concomitant]
     Route: 048
     Dates: start: 20070601, end: 20070612
  3. RABEPRAZOLE SODIUM [Concomitant]
     Route: 048
     Dates: start: 20070227
  4. ATENOLOL [Concomitant]
     Route: 048
     Dates: end: 20070608
  5. CANDESARTAN [Concomitant]
     Route: 048
     Dates: start: 20070401, end: 20070608

REACTIONS (6)
  - DYSPNOEA [None]
  - HEPATOSPLENOMEGALY [None]
  - LUNG INFILTRATION [None]
  - LYMPHADENOPATHY [None]
  - PYREXIA [None]
  - WHITE BLOOD CELL COUNT INCREASED [None]
